FAERS Safety Report 4475684-2 (Version None)
Quarter: 2004Q4

REPORT INFORMATION
  Report Type: 
  Country: None (occurrence: None)
  Receive Date: 20041012
  Receipt Date: 20040930
  Transmission Date: 20050328
  Serious: Yes (Hospitalization)
  Sender: FDA-Public Use
  Company Number: K200401497

PATIENT
  Sex: Female

DRUGS (3)
  1. DELESTROGEN [Suspect]
     Dosage: LESS THAN 1 MG
     Dates: start: 20040807
  2. DELESTROGEN [Suspect]
     Dosage: LESS THAN 1 MG
     Dates: start: 20040812
  3. DELESTROGEN [Suspect]
     Dosage: LESS THAN 1 MG
     Dates: start: 20040815

REACTIONS (2)
  - BLOOD PRESSURE INCREASED [None]
  - PREGNANCY [None]
